FAERS Safety Report 8151197-1 (Version None)
Quarter: 2012Q1

REPORT INFORMATION
  Report Type: 
  Country: None (occurrence: None)
  Receive Date: 20120220
  Receipt Date: 20120214
  Transmission Date: 20120608
  Serious: Yes (Hospitalization, Other)
  Sender: FDA-Public Use
  Company Number: US-ASTRAZENECA-2012SE10448

PATIENT
  Age: 63 Year
  Sex: Male

DRUGS (2)
  1. ACCOLATE [Suspect]
     Route: 048
  2. TOPROL-XL [Suspect]
     Route: 048

REACTIONS (2)
  - NEOPLASM RECURRENCE [None]
  - BRAIN NEOPLASM [None]
